FAERS Safety Report 6596703-3 (Version None)
Quarter: 2010Q1

REPORT INFORMATION
  Report Type: 
  Country: None (occurrence: None)
  Receive Date: 20100223
  Receipt Date: 20100219
  Transmission Date: 20100710
  Serious: Yes (Hospitalization)
  Sender: FDA-Public Use
  Company Number: FR-BRISTOL-MYERS SQUIBB COMPANY-14929574

PATIENT
  Age: 5 Decade
  Sex: Male

DRUGS (1)
  1. ABILIFY [Suspect]
     Dosage: INITIALLY STARTED WITH 10MG FOR 8 DAYS; INCREASED TO 15MG/D FOR 8DAYS

REACTIONS (2)
  - COMA [None]
  - DRUG INEFFECTIVE [None]
